FAERS Safety Report 7910593-5 (Version None)
Quarter: 2011Q4

REPORT INFORMATION
  Report Type: 
  Country: None (occurrence: None)
  Receive Date: 20111111
  Receipt Date: 20111107
  Transmission Date: 20120403
  Serious: Yes (Life-Threatening, Hospitalization)
  Sender: FDA-Public Use
  Company Number: PHEH2011US08204

PATIENT
  Sex: Female

DRUGS (27)
  1. DILAUDID [Concomitant]
     Dosage: UNK UKN, UNK
  2. DELTASONE [Concomitant]
     Dosage: 10 MG, QD
     Route: 048
  3. RUBRAMIN [Concomitant]
     Dosage: 1 ML, UNK
  4. CELEXA [Concomitant]
     Dosage: 40 MG, DAILY
     Route: 048
  5. ANTIVERT [Concomitant]
     Dosage: 25 MG, QID
  6. IMITREX [Concomitant]
     Dosage: 100 MG, BY MOUTH AS NEEDED
     Route: 048
  7. COMPAZINE [Concomitant]
     Indication: NAUSEA
     Dosage: 1 DF, Q8H
     Route: 048
  8. GILENYA [Suspect]
     Indication: MULTIPLE SCLEROSIS
     Dosage: 0.5 MG, QD
     Route: 048
     Dates: start: 20101201
  9. OSCAL 500-D [Concomitant]
     Dosage: 1 DF, BID
     Route: 048
  10. VICODIN [Concomitant]
     Dosage: 1 DF, Q4H
     Route: 048
  11. NICOTROL [Concomitant]
     Dosage: 21 MG/ DAY
     Route: 062
  12. VALTREX [Concomitant]
     Dosage: BY MOUTH AS NEEDED
     Route: 048
  13. DILAUDID [Concomitant]
     Dosage: 2 MG, QD
     Route: 048
  14. KLONOPIN [Concomitant]
     Dosage: 0.5 MG, BID
     Route: 048
  15. OXYCODONE HCL [Concomitant]
     Dosage: 10 MG, UNK
     Route: 048
  16. DELTASONE [Concomitant]
     Dosage: 20 MG, QD
     Route: 048
  17. TOPAMAX [Concomitant]
     Dosage: 100 MG, BID
     Route: 048
  18. SYMBICORT [Concomitant]
     Dosage: 2 PUFFS BY MOUTH
     Route: 048
  19. POTASSIUM CHLORIDE [Concomitant]
     Dosage: 2 DF, DAILY
     Route: 048
  20. VALIUM [Concomitant]
     Dosage: 0.5 TO 1 TAB
     Route: 048
  21. OXYCODONE HCL [Concomitant]
     Dosage: 20 MG, Q12H
     Route: 048
  22. ZOCOR [Concomitant]
     Dosage: 1 DF, AT BED TIME
     Route: 048
  23. REGLAN [Concomitant]
     Dosage: 1 DF, QID
     Route: 048
  24. VITAMIN B COMPLEX CAP [Concomitant]
     Dosage: 1 DF, DAILY
     Route: 048
  25. AMBIEN [Concomitant]
     Dosage: 1 DF, AT BED TIME
     Route: 048
  26. CLARITIN [Concomitant]
     Dosage: 10 MG, DAILY
     Route: 048
  27. PROAIR HFA [Concomitant]
     Dosage: 2 PUFFS BY MOUTH

REACTIONS (23)
  - PNEUMONIA VIRAL [None]
  - HYPOKALAEMIA [None]
  - SHOCK [None]
  - DYSPNOEA [None]
  - TACHYPNOEA [None]
  - HYPOXIA [None]
  - SIMPLEX VIRUS TEST POSITIVE [None]
  - MUSCULAR WEAKNESS [None]
  - HYPOAESTHESIA [None]
  - ANAEMIA [None]
  - HYPERCAPNIA [None]
  - DIARRHOEA [None]
  - PYREXIA [None]
  - AGITATION [None]
  - RESPIRATORY FAILURE [None]
  - HAEMORRHAGE [None]
  - SOMNOLENCE [None]
  - LEUKOCYTOSIS [None]
  - EXTRAOCULAR MUSCLE PARESIS [None]
  - HYPOTENSION [None]
  - CHEST PAIN [None]
  - RESPIRATORY DISTRESS [None]
  - DRUG DEPENDENCE [None]
